FAERS Safety Report 7283145-0 (Version None)
Quarter: 2011Q1

REPORT INFORMATION
  Report Type: 
  Country: None (occurrence: None)
  Receive Date: 20110209
  Receipt Date: 20110126
  Transmission Date: 20110831
  Serious: Yes (Hospitalization)
  Sender: FDA-Public Use
  Company Number: DE-ROCHE-757535

PATIENT
  Sex: Male
  Weight: 90.7 kg

DRUGS (7)
  1. CANDESARTAN [Concomitant]
  2. CAPECITABINE [Suspect]
     Route: 048
     Dates: start: 20100901
  3. SIMVASTATIN [Concomitant]
  4. OXYCODONE HCL [Concomitant]
  5. ASPIRIN [Concomitant]
  6. BISOPROLOL [Concomitant]
  7. TAMSULOSIN HCL [Concomitant]

REACTIONS (1)
  - DERMATITIS EXFOLIATIVE [None]
